FAERS Safety Report 10684073 (Version 1)
Quarter: 2014Q4

REPORT INFORMATION
  Report Type: Report from Study
  Country: KR (occurrence: KR)
  Receive Date: 20141230
  Receipt Date: 20141230
  Transmission Date: 20150529
  Serious: Yes (Death)
  Sender: FDA-Public Use
  Company Number: KR-MYLANLABS-2014M1015715

PATIENT

DRUGS (1)
  1. PIPERACILLIN,TAZOBACTAM [Suspect]
     Active Substance: PIPERACILLIN SODIUM\TAZOBACTAM SODIUM
     Indication: RAOULTELLA ORNITHINOLYTICA INFECTION
     Route: 065

REACTIONS (2)
  - Raoultella ornithinolytica infection [Fatal]
  - Treatment failure [Fatal]
